FAERS Safety Report 4603848-3 (Version None)
Quarter: 2005Q1

REPORT INFORMATION
  Report Type: 
  Country: None (occurrence: None)
  Receive Date: 20050308
  Receipt Date: 20050222
  Transmission Date: 20050727
  Serious: Yes (Hospitalization)
  Sender: FDA-Public Use
  Company Number: HQWYE552124FEB05

PATIENT
  Age: 52 Year
  Sex: Male

DRUGS (19)
  1. ZOSYN [Suspect]
     Indication: INFECTION PROPHYLAXIS
  2. ERYTHROMYCIN [Suspect]
  3. FLUCONAZOLE [Suspect]
     Indication: INFECTION PROPHYLAXIS
  4. GATIFLOXACIN [Suspect]
     Indication: INFECTION PROPHYLAXIS
  5. PRIMAXIN [Suspect]
     Indication: INFECTION PROPHYLAXIS
  6. TOBRAMYCIN [Suspect]
     Indication: ENTEROBACTER INFECTION
  7. VANCOMYCIN [Suspect]
     Indication: INFECTION PROPHYLAXIS
  8. PANTOPRAZOLE (PANTOPRAZOLE) [Concomitant]
  9. LORAZEPAM [Concomitant]
  10. MORPHINE (MORPHINE) [Concomitant]
  11. ALBUTEROL [Concomitant]
  12. IPRATROPIUM BROMIDE [Concomitant]
  13. ERYTHROPOIETIN (ERYTHROPOIETIN) [Concomitant]
  14. FERROUS SULFATE TAB [Concomitant]
  15. METOCLOPRAMIDE [Concomitant]
  16. INSULIN [Concomitant]
  17. CLONIDINE [Concomitant]
  18. PARENTERAL (CALCIUM CHLORIDE HEXAHYDRATE/POTASSIUM CHLORIDE/SODIUM ACE [Concomitant]
  19. DEXAMETHASONE [Concomitant]

REACTIONS (14)
  - ASPIRATION [None]
  - BLADDER DISORDER [None]
  - CHOLESTASIS [None]
  - DRUG INEFFECTIVE [None]
  - ENTEROBACTER INFECTION [None]
  - GENERAL PHYSICAL HEALTH DETERIORATION [None]
  - HAEMODIALYSIS [None]
  - HYPOTENSION [None]
  - HYPOXIA [None]
  - LARGE INTESTINE PERFORATION [None]
  - LEUKOCYTOCLASTIC VASCULITIS [None]
  - RENAL FAILURE ACUTE [None]
  - STEVENS-JOHNSON SYNDROME [None]
  - TOXIC EPIDERMAL NECROLYSIS [None]
